FAERS Safety Report 15992317 (Version 2)
Quarter: 2019Q1

REPORT INFORMATION
  Report Type: Spontaneous
  Country: US (occurrence: US)
  Receive Date: 20190221
  Receipt Date: 20190311
  Transmission Date: 20190418
  Serious: No
  Sender: FDA-Public Use
  Company Number: US-ALLERGAN-1809736US

PATIENT
  Sex: Female
  Weight: 58.96 kg

DRUGS (1)
  1. OXYTROL [Suspect]
     Active Substance: OXYBUTYNIN
     Indication: HYPERTONIC BLADDER
     Dosage: EVERY 3-4 DAYS
     Route: 062

REACTIONS (2)
  - Product adhesion issue [Unknown]
  - Inappropriate schedule of product administration [Unknown]
